FAERS Safety Report 18363973 (Version 6)
Quarter: 2021Q4

REPORT INFORMATION
  Report Type: Spontaneous
  Country: US (occurrence: US)
  Receive Date: 20201009
  Receipt Date: 20211013
  Transmission Date: 20220303
  Serious: Yes (Disabling, Other)
  Sender: FDA-Public Use
  Company Number: US-JNJFOC-20201000029

PATIENT
  Age: 4 Decade
  Sex: Female

DRUGS (19)
  1. ELMIRON [Suspect]
     Active Substance: PENTOSAN POLYSULFATE SODIUM
     Indication: Cystitis interstitial
     Dosage: VARYING DOSE OF 100 MG 3 TIMES A DAY AND 100 MG 3 TABLET TWICE DAILY A DAY
     Route: 048
     Dates: start: 200105, end: 201105
  2. ELMIRON [Suspect]
     Active Substance: PENTOSAN POLYSULFATE SODIUM
     Route: 048
     Dates: start: 201105, end: 201106
  3. ELMIRON [Suspect]
     Active Substance: PENTOSAN POLYSULFATE SODIUM
     Route: 048
     Dates: start: 201106, end: 201802
  4. ELMIRON [Suspect]
     Active Substance: PENTOSAN POLYSULFATE SODIUM
     Route: 048
     Dates: start: 201802, end: 201911
  5. ELMIRON [Suspect]
     Active Substance: PENTOSAN POLYSULFATE SODIUM
     Route: 048
     Dates: start: 202003
  6. AMITRIPTYLINE [Concomitant]
     Active Substance: AMITRIPTYLINE
     Indication: Cystitis interstitial
     Route: 065
     Dates: start: 2002
  7. CARVEDILOL [Concomitant]
     Active Substance: CARVEDILOL
     Indication: Hypertension
     Route: 065
     Dates: start: 201706
  8. IRBESARTAN [Concomitant]
     Active Substance: IRBESARTAN
     Indication: Hypertension
     Route: 065
     Dates: start: 201812
  9. PREDNISONE [Concomitant]
     Active Substance: PREDNISONE
     Indication: Product used for unknown indication
     Route: 065
     Dates: start: 2009, end: 2012
  10. VANCOCIN [Concomitant]
     Active Substance: VANCOMYCIN HYDROCHLORIDE
     Indication: Colitis
     Route: 065
     Dates: start: 2010, end: 2012
  11. NITROGLYCERIN [Concomitant]
     Active Substance: NITROGLYCERIN
     Indication: Anal fissure
     Route: 054
     Dates: start: 201002, end: 201002
  12. QUASENSE [Concomitant]
     Active Substance: ETHINYL ESTRADIOL\LEVONORGESTREL
     Indication: Contraception
     Route: 065
     Dates: start: 201005, end: 201605
  13. CLOTRIMAZOLE [Concomitant]
     Active Substance: CLOTRIMAZOLE
     Indication: Fungal infection
     Route: 061
     Dates: start: 201310, end: 201406
  14. NASONEX [Concomitant]
     Active Substance: MOMETASONE FUROATE
     Indication: Multiple allergies
     Route: 065
     Dates: start: 201012, end: 201311
  15. DIFICID [Concomitant]
     Active Substance: FIDAXOMICIN
     Indication: Clostridium difficile colitis
     Route: 065
     Dates: start: 20111007, end: 201507
  16. TERCONAZOLE [Concomitant]
     Active Substance: TERCONAZOLE
     Indication: Fungal infection
     Route: 065
     Dates: start: 20151019, end: 201511
  17. INTROVALE [Concomitant]
     Active Substance: ETHINYL ESTRADIOL\LEVONORGESTREL
     Indication: Contraception
     Route: 065
     Dates: start: 20190531, end: 202002
  18. POTASSIUM CHLORIDE [Concomitant]
     Active Substance: POTASSIUM CHLORIDE
     Indication: Electrolyte imbalance
     Route: 065
     Dates: start: 20181010, end: 201906
  19. VITAMIN B6 [Concomitant]
     Active Substance: PYRIDOXINE HYDROCHLORIDE
     Indication: Nutritional supplementation
     Route: 065
     Dates: start: 201805, end: 201904

REACTIONS (9)
  - Blindness [Unknown]
  - Retinal dystrophy [Unknown]
  - Age-related macular degeneration [Recovering/Resolving]
  - Maculopathy [Unknown]
  - Tachycardia [Unknown]
  - Dry eye [Unknown]
  - Depression [Not Recovered/Not Resolved]
  - Product use issue [Unknown]
  - Off label use [Unknown]

NARRATIVE: CASE EVENT DATE: 20150101
